FAERS Safety Report 9406194 (Version 9)
Quarter: 2015Q2

REPORT INFORMATION
  Report Type: Spontaneous
  Country: US (occurrence: US)
  Receive Date: 20130717
  Receipt Date: 20150422
  Transmission Date: 20150821
  Serious: No
  Sender: FDA-Public Use
  Company Number: US-009507513-1307USA008135

PATIENT
  Sex: Male
  Weight: 99.77 kg

DRUGS (1)
  1. PROPECIA [Suspect]
     Active Substance: FINASTERIDE
     Indication: ANDROGENETIC ALOPECIA
     Dosage: 1 MG, QD
     Route: 048
     Dates: start: 1999, end: 201108

REACTIONS (37)
  - Disturbance in attention [Unknown]
  - Anxiety [Unknown]
  - Type 2 diabetes mellitus [Unknown]
  - Fatigue [Unknown]
  - Sexual dysfunction [Unknown]
  - Gynaecomastia [Unknown]
  - Sleep disorder [Unknown]
  - Weight control [Unknown]
  - Muscle strain [Unknown]
  - Social problem [Unknown]
  - Melanocytic naevus [Unknown]
  - Weight increased [Unknown]
  - Hypertension [Unknown]
  - Attention deficit/hyperactivity disorder [Unknown]
  - Erectile dysfunction [Unknown]
  - Periarthritis [Unknown]
  - Carpal tunnel syndrome [Unknown]
  - Oedema peripheral [Unknown]
  - Stress [Unknown]
  - Libido decreased [Unknown]
  - Cognitive disorder [Not Recovered/Not Resolved]
  - Nightmare [Unknown]
  - Eyelid cyst [Unknown]
  - Breast mass [Unknown]
  - Diabetes mellitus inadequate control [Unknown]
  - Obesity [Unknown]
  - Panic attack [Unknown]
  - Activities of daily living impaired [Unknown]
  - Testicular failure [Unknown]
  - Gastrooesophageal reflux disease [Unknown]
  - Depression [Unknown]
  - Peyronie^s disease [Unknown]
  - Type V hyperlipidaemia [Unknown]
  - Penis disorder [Unknown]
  - Hypogonadism [Unknown]
  - Rib fracture [Unknown]
  - Erectile dysfunction [Unknown]

NARRATIVE: CASE EVENT DATE: 19991130
